FAERS Safety Report 13632975 (Version 2)
Quarter: 2017Q2

REPORT INFORMATION
  Report Type: Report from Study
  Country: None (occurrence: CR)
  Receive Date: 20170609
  Receipt Date: 20170613
  Transmission Date: 20170830
  Serious: Yes (Other)
  Sender: FDA-Public Use
  Company Number: CR-ABBVIE-17K-039-2000866-00

PATIENT
  Age: 39 Year
  Sex: Male

DRUGS (2)
  1. HUMIRA [Suspect]
     Active Substance: ADALIMUMAB
     Indication: PSORIATIC ARTHROPATHY
     Route: 058
     Dates: start: 20130510, end: 201612
  2. ARCOXIA [Suspect]
     Active Substance: ETORICOXIB
     Indication: ANTIINFLAMMATORY THERAPY
     Route: 048
     Dates: start: 201201

REACTIONS (10)
  - Gastrointestinal dysplasia [Recovering/Resolving]
  - Adverse event [Recovering/Resolving]
  - Constipation [Recovering/Resolving]
  - Irritable bowel syndrome [Recovering/Resolving]
  - Arthralgia [Recovering/Resolving]
  - Food allergy [Recovering/Resolving]
  - Psoriasis [Recovering/Resolving]
  - Intestinal polyp [Recovering/Resolving]
  - Gallbladder polyp [Recovering/Resolving]
  - Colitis ulcerative [Recovering/Resolving]

NARRATIVE: CASE EVENT DATE: 201606
